FAERS Safety Report 18533605 (Version 1)
Quarter: 2020Q4

REPORT INFORMATION
  Report Type: Spontaneous
  Country: US (occurrence: US)
  Receive Date: 20201119
  Receipt Date: 20201119
  Transmission Date: 20210114
  Serious: Yes (Other)
  Sender: FDA-Public Use
  Company Number: None

PATIENT
  Age: 42 Year
  Sex: Female

DRUGS (3)
  1. ECLIPSE PLATELET RICH PLASMA (PRP) [Suspect]
     Active Substance: PLATELET RICH PLASMA
     Indication: HAIR DISORDER
  2. TOFACITINIB [Concomitant]
     Active Substance: TOFACITINIB
  3. VITAMIN D [Concomitant]
     Active Substance: VITAMIN D NOS

REACTIONS (6)
  - Pain [None]
  - Contraindicated product administered [None]
  - Alopecia [None]
  - Autoimmune disorder [None]
  - Victim of crime [None]
  - Product use in unapproved indication [None]

NARRATIVE: CASE EVENT DATE: 20190910
